FAERS Safety Report 9535873 (Version 1)
Quarter: 2013Q3

REPORT INFORMATION
  Report Type: Spontaneous
  Country: US (occurrence: None)
  Receive Date: 20130917
  Receipt Date: 20130917
  Transmission Date: 20140515
  Serious: No
  Sender: FDA-Public Use
  Company Number: None

PATIENT
  Age: 81 None
  Sex: Male
  Weight: 50 kg

DRUGS (2)
  1. CIPROFLOXACIN [Suspect]
     Indication: CYSTITIS
     Route: 048
     Dates: start: 19980827, end: 20060802
  2. CIPROFLOXACIN [Suspect]
     Indication: PROSTATE INFECTION
     Route: 048
     Dates: start: 19980827, end: 20060802

REACTIONS (1)
  - Tendon rupture [None]
